FAERS Safety Report 11498310 (Version 1)
Quarter: 2015Q3

REPORT INFORMATION
  Report Type: Spontaneous
  Country: US (occurrence: US)
  Receive Date: 20150911
  Receipt Date: 20150911
  Transmission Date: 20151125
  Serious: No
  Sender: FDA-Public Use
  Company Number: US-ELI_LILLY_AND_COMPANY-US201509003942

PATIENT
  Sex: Female

DRUGS (1)
  1. HUMALOG [Suspect]
     Active Substance: INSULIN LISPRO
     Indication: TYPE 1 DIABETES MELLITUS
     Dosage: 5 U, QID TO FIVE TIMES DAILY
     Route: 065

REACTIONS (5)
  - Anxiety [Unknown]
  - Incorrect product storage [Unknown]
  - Panic reaction [Unknown]
  - Drug effect incomplete [Unknown]
  - Depressed mood [Recovering/Resolving]
